FAERS Safety Report 19488017 (Version 2)
Quarter: 2021Q4

REPORT INFORMATION
  Report Type: Spontaneous
  Country: JP (occurrence: JP)
  Receive Date: 20210702
  Receipt Date: 20211011
  Transmission Date: 20220303
  Serious: No
  Sender: FDA-Public Use
  Company Number: JP-GSKNCCC-CASE-01174117_AE-42349

PATIENT
  Age: 3 Decade
  Sex: Male

DRUGS (2)
  1. LAMICTAL [Suspect]
     Active Substance: LAMOTRIGINE
     Indication: Epilepsy
     Dosage: 400 MG, 1D AFTER BREAKFAST AND DINNER
     Route: 048
  2. MYSTAN [Concomitant]
     Active Substance: CLOBAZAM
     Indication: Epilepsy

REACTIONS (1)
  - Prescribed overdose [Unknown]
